FAERS Safety Report 9403461 (Version 1)
Quarter: 2013Q3

REPORT INFORMATION
  Report Type: Spontaneous
  Country: FR (occurrence: FR)
  Receive Date: 20130716
  Receipt Date: 20130716
  Transmission Date: 20140515
  Serious: Yes (Other)
  Sender: FDA-Public Use
  Company Number: FR-ASTRAZENECA-2013SE51484

PATIENT
  Age: 73 Year
  Sex: Female

DRUGS (1)
  1. ARIMIDEX [Suspect]
     Route: 048
     Dates: start: 200906, end: 2012

REACTIONS (3)
  - Polymyositis [Not Recovered/Not Resolved]
  - Myopathy [Not Recovered/Not Resolved]
  - Immune-mediated necrotising myopathy [Not Recovered/Not Resolved]
